FAERS Safety Report 14182608 (Version 1)
Quarter: 2017Q4

REPORT INFORMATION
  Report Type: Report from Study
  Country: None (occurrence: US)
  Receive Date: 20171113
  Receipt Date: 20171113
  Transmission Date: 20180321
  Serious: Yes (Hospitalization)
  Sender: FDA-Public Use
  Company Number: US-ABBVIE-17K-163-2042606-00

PATIENT
  Age: 46 Year
  Sex: Male
  Weight: 229.27 kg

DRUGS (4)
  1. HUMIRA [Suspect]
     Active Substance: ADALIMUMAB
     Indication: PSORIASIS
  2. HUMIRA [Suspect]
     Active Substance: ADALIMUMAB
     Indication: ECZEMA
  3. FUROSEMIDE. [Concomitant]
     Active Substance: FUROSEMIDE
     Indication: OEDEMA
  4. HUMIRA [Suspect]
     Active Substance: ADALIMUMAB
     Indication: PSORIASIS
     Route: 058
     Dates: start: 20170706

REACTIONS (5)
  - Renal failure [Recovering/Resolving]
  - Cellulitis [Not Recovered/Not Resolved]
  - Dizziness [Unknown]
  - Frequent bowel movements [Unknown]
  - Vision blurred [Unknown]

NARRATIVE: CASE EVENT DATE: 20170713
